FAERS Safety Report 25293437 (Version 2)
Quarter: 2025Q3

REPORT INFORMATION
  Report Type: Spontaneous
  Country: US (occurrence: US)
  Receive Date: 20250510
  Receipt Date: 20250715
  Transmission Date: 20251020
  Serious: No
  Sender: SANOFI AVENTIS
  Company Number: US-SA-2025SA125260

PATIENT
  Age: 10 Year
  Sex: Male

DRUGS (4)
  1. DUPIXENT [Suspect]
     Active Substance: DUPILUMAB
     Indication: Asthma
     Dosage: 200 MG, QOW
     Route: 058
     Dates: start: 20250302
  2. SYMBICORT [Concomitant]
     Active Substance: BUDESONIDE\FORMOTEROL FUMARATE DIHYDRATE
  3. ZITHROMAX [Concomitant]
     Active Substance: AZITHROMYCIN DIHYDRATE
  4. ALBUTEROL SULFATE [Concomitant]
     Active Substance: ALBUTEROL SULFATE

REACTIONS (13)
  - Weight increased [Unknown]
  - Asthma [Unknown]
  - Sinus congestion [Unknown]
  - Oropharyngeal pain [Recovered/Resolved]
  - Dizziness [Unknown]
  - Lethargy [Unknown]
  - Asthenia [Unknown]
  - Respiratory disorder [Unknown]
  - Chest discomfort [Unknown]
  - Productive cough [Recovering/Resolving]
  - Inflammation [Unknown]
  - Dyspnoea [Unknown]
  - Oxygen saturation decreased [Unknown]

NARRATIVE: CASE EVENT DATE: 20250101
